FAERS Safety Report 6534381-X (Version None)
Quarter: 2010Q1

REPORT INFORMATION
  Report Type: 
  Country: None (occurrence: None)
  Receive Date: 20100112
  Receipt Date: 20100106
  Transmission Date: 20100710
  Serious: Yes (Death, Life-Threatening, Hospitalization)
  Sender: FDA-Public Use
  Company Number: DE-ELI_LILLY_AND_COMPANY-DE200911000880

PATIENT
  Sex: Male
  Weight: 65 kg

DRUGS (10)
  1. ALIMTA [Suspect]
     Indication: NON-SMALL CELL LUNG CANCER
     Dosage: 880 MG, UNKNOWN
     Route: 042
     Dates: start: 20091019
  2. DEXAMETHASONE [Concomitant]
     Dosage: UNK, UNKNOWN
     Route: 065
     Dates: start: 20091001
  3. VITAMIN B-12 [Concomitant]
     Indication: PROPHYLAXIS
     Dosage: UNK, UNKNOWN
     Route: 065
     Dates: start: 20091001
  4. FOLIC ACID [Concomitant]
     Indication: PROPHYLAXIS
     Dosage: UNK, UNKNOWN
     Route: 065
     Dates: start: 20091001
  5. LEVOMETHADONE [Concomitant]
     Dosage: UNK, UNKNOWN
     Route: 065
  6. DRONABINOL [Concomitant]
     Dosage: UNK, UNKNOWN
     Route: 065
  7. ARCOXIA [Concomitant]
     Dosage: UNK, UNKNOWN
     Route: 065
  8. RASILEZ [Concomitant]
     Dosage: UNK, UNKNOWN
     Route: 065
  9. ESIDRIX [Concomitant]
     Dosage: UNK, UNKNOWN
     Route: 065
  10. KALINOR RETARD [Concomitant]
     Dosage: UNK, UNKNOWN
     Route: 065

REACTIONS (5)
  - DEATH [None]
  - ERYTHEMA MULTIFORME [None]
  - MUCOSAL INFLAMMATION [None]
  - PANCYTOPENIA [None]
  - WEIGHT DECREASED [None]
